FAERS Safety Report 8731238 (Version 2)
Quarter: 2012Q4

REPORT INFORMATION
  Report Type: 
  Country: US (occurrence: US)
  Receive Date: 20120820
  Receipt Date: 20120919
  Transmission Date: 20130627
  Serious: Yes (Other)
  Sender: FDA-Public Use
  Company Number: US-PFIZER INC-2012197252

PATIENT
  Age: 14 Year
  Sex: Female

DRUGS (6)
  1. EPIPEN [Suspect]
     Indication: HYPERSENSITIVITY
     Dosage: 0.3 ml, as needed
     Route: 030
     Dates: start: 2011
  2. EPIPEN [Suspect]
     Indication: DYSPNOEA
  3. ACCOLATE [Concomitant]
     Indication: HYPERSENSITIVITY
     Dosage: UNK
     Route: 048
  4. DULERA [Concomitant]
     Indication: HYPERSENSITIVITY
     Dosage: UNK
     Route: 045
  5. QVAR [Concomitant]
     Indication: HYPERSENSITIVITY
     Dosage: UNK
     Route: 045
  6. VENTOLIN [Concomitant]
     Indication: HYPERSENSITIVITY
     Dosage: UNK
     Route: 045

REACTIONS (2)
  - Product quality issue [Unknown]
  - Drug ineffective [Recovered/Resolved]
